FAERS Safety Report 11246478 (Version 1)
Quarter: 2015Q3

REPORT INFORMATION
  Report Type: Spontaneous
  Country: US (occurrence: None)
  Receive Date: 20150706
  Receipt Date: 20150706
  Transmission Date: 20151125
  Serious: Yes (Other)
  Sender: FDA-Public Use
  Company Number: None

PATIENT
  Age: 37 Year
  Sex: Female
  Weight: 68.04 kg

DRUGS (4)
  1. ALLEGRA [Concomitant]
     Active Substance: FEXOFENADINE HYDROCHLORIDE
  2. HUMIRA [Suspect]
     Active Substance: ADALIMUMAB
     Indication: RHEUMATOID ARTHRITIS
     Dates: start: 20150115, end: 20150701
  3. SULFASALAZINE. [Concomitant]
     Active Substance: SULFASALAZINE
  4. ORTHOTRICYCLINE [Concomitant]

REACTIONS (1)
  - Alopecia [None]

NARRATIVE: CASE EVENT DATE: 20150701
